FAERS Safety Report 8607328-X (Version None)
Quarter: 2012Q3

REPORT INFORMATION
  Report Type: 
  Country: None (occurrence: None)
  Receive Date: 20120806
  Receipt Date: 20120723
  Transmission Date: 20120928
  Serious: Yes (Other)
  Sender: FDA-Public Use
  Company Number: 2012AP002196

PATIENT

DRUGS (4)
  1. ALENDRONATE SODIUM [Suspect]
     Indication: OSTEOPOROSIS
  2. ALENDRONATE SODIUM [Suspect]
     Indication: OSTEOPOROSIS
  3. IBANDRONATE SODIUM [Suspect]
     Indication: OSTEOPOROSIS
  4. IBANDRONATE SODIUM [Suspect]
     Indication: OSTEOPOROSIS

REACTIONS (8)
  - MULTIPLE INJURIES [None]
  - PAIN [None]
  - FEMUR FRACTURE [None]
  - EMOTIONAL DISORDER [None]
  - ANXIETY [None]
  - ANHEDONIA [None]
  - LOW TURNOVER OSTEOPATHY [None]
  - FEAR OF DISEASE [None]
